FAERS Safety Report 24996361 (Version 5)
Quarter: 2025Q2

REPORT INFORMATION
  Report Type: Spontaneous
  Country: US (occurrence: US)
  Receive Date: 20250221
  Receipt Date: 20250403
  Transmission Date: 20250716
  Serious: No
  Sender: PFIZER
  Company Number: US-PFIZER INC-202500036933

PATIENT
  Age: 11 Year
  Sex: Male
  Weight: 34.47 kg

DRUGS (1)
  1. GENOTROPIN [Suspect]
     Active Substance: SOMATROPIN
     Indication: Noonan syndrome
     Dosage: 1.5 MG, DAILY (7 DAYS/WEEK)
     Route: 058

REACTIONS (2)
  - Device material issue [Unknown]
  - Off label use [Unknown]
